FAERS Safety Report 18150216 (Version 1)
Quarter: 2020Q3

REPORT INFORMATION
  Report Type: Spontaneous
  Country: US (occurrence: US)
  Receive Date: 20200814
  Receipt Date: 20200814
  Transmission Date: 20201103
  Serious: No
  Sender: FDA-Public Use
  Company Number: US-LUPIN PHARMACEUTICALS INC.-2020-02903

PATIENT
  Age: 8 Month
  Sex: Female
  Weight: 9 kg

DRUGS (1)
  1. FAMOTIDINE FOR ORAL SUSPENSION USP 40 MG/5ML [Suspect]
     Active Substance: FAMOTIDINE
     Indication: GASTROOESOPHAGEAL REFLUX DISEASE
     Dosage: 40 MG/5ML, BID
     Route: 048

REACTIONS (3)
  - No adverse event [Unknown]
  - Circumstance or information capable of leading to medication error [Unknown]
  - Product storage error [Unknown]

NARRATIVE: CASE EVENT DATE: 20200607
